FAERS Safety Report 11931535 (Version 1)
Quarter: 2016Q1

REPORT INFORMATION
  Report Type: Spontaneous
  Country: SK (occurrence: SK)
  Receive Date: 20160120
  Receipt Date: 20160120
  Transmission Date: 20160526
  Serious: Yes (Life-Threatening)
  Sender: FDA-Public Use
  Company Number: SK-JNJFOC-20160113583

PATIENT
  Age: 69 Year
  Sex: Male

DRUGS (9)
  1. VALSARTAN AND HYDROCHLOROTHIAZIDE [Concomitant]
     Active Substance: HYDROCHLOROTHIAZIDE\VALSARTAN
     Route: 065
  2. FRONTIN [Concomitant]
     Active Substance: ALPRAZOLAM
     Route: 065
  3. CORVATON [Concomitant]
     Active Substance: MOLSIDOMINE
     Route: 065
  4. FUROSEMIDE. [Concomitant]
     Active Substance: FUROSEMIDE
     Route: 065
  5. XARELTO [Suspect]
     Active Substance: RIVAROXABAN
     Indication: PRODUCT USED FOR UNKNOWN INDICATION
     Route: 048
     Dates: start: 201508, end: 20160106
  6. HELICID [Concomitant]
     Route: 065
  7. KALDYUM [Concomitant]
     Active Substance: POTASSIUM CHLORIDE
     Route: 065
  8. VEROSPIRON [Concomitant]
     Active Substance: SPIRONOLACTONE
     Route: 065
  9. MEDROL [Concomitant]
     Active Substance: METHYLPREDNISOLONE
     Route: 065

REACTIONS (1)
  - Pulmonary embolism [Recovered/Resolved]

NARRATIVE: CASE EVENT DATE: 20160106
